FAERS Safety Report 17618293 (Version 1)
Quarter: 2020Q2

REPORT INFORMATION
  Report Type: Spontaneous
  Country: IT (occurrence: IT)
  Receive Date: 20200402
  Receipt Date: 20200402
  Transmission Date: 20200713
  Serious: Yes (Hospitalization)
  Sender: FDA-Public Use
  Company Number: NVSC2020IT078871

PATIENT
  Age: 56 Year
  Sex: Female

DRUGS (5)
  1. QUETIAPINE FUMARATE. [Suspect]
     Active Substance: QUETIAPINE FUMARATE
     Indication: INSOMNIA
     Dosage: 150 MG, QD
     Route: 048
     Dates: start: 20190528, end: 20190528
  2. METFORMIN [Concomitant]
     Active Substance: METFORMIN HYDROCHLORIDE
     Indication: DIABETES MELLITUS
     Route: 065
  3. RAMIPRIL. [Concomitant]
     Active Substance: RAMIPRIL
     Indication: HYPERTENSION
     Route: 065
  4. IBUPROFEN. [Concomitant]
     Active Substance: IBUPROFEN
     Indication: ARTHRALGIA
     Route: 065
  5. CLOPIXOL [Concomitant]
     Active Substance: ZUCLOPENTHIXOL
     Indication: MENTAL DISORDER
     Dosage: 100 MG
     Route: 030
     Dates: start: 20190527, end: 20190527

REACTIONS (4)
  - Disorientation [Recovered/Resolved]
  - Malaise [Recovered/Resolved]
  - Psychogenic tremor [Recovered/Resolved]
  - Negativism [Recovered/Resolved]

NARRATIVE: CASE EVENT DATE: 20190528
